FAERS Safety Report 5730248-5 (Version None)
Quarter: 2008Q2

REPORT INFORMATION
  Report Type: 
  Country: None (occurrence: None)
  Receive Date: 20080505
  Receipt Date: 20080505
  Transmission Date: 20081010
  Serious: Yes (Hospitalization)
  Sender: FDA-Public Use
  Company Number: None

PATIENT
  Sex: Female
  Weight: 62.5964 kg

DRUGS (1)
  1. DIGITEK 0.25 [Suspect]
     Dosage: ONE DAILY
     Dates: start: 20070101, end: 20080428

REACTIONS (7)
  - CONFUSIONAL STATE [None]
  - GAIT DISTURBANCE [None]
  - HEART RATE INCREASED [None]
  - HYPOTENSION [None]
  - IMPAIRED HEALING [None]
  - RASH [None]
  - VISION BLURRED [None]
